FAERS Safety Report 6692379-5 (Version None)
Quarter: 2010Q2

REPORT INFORMATION
  Report Type: 
  Country: None (occurrence: None)
  Receive Date: 20100419
  Receipt Date: 20100406
  Transmission Date: 20101027
  Serious: No
  Sender: FDA-Public Use
  Company Number: OSCN-NO-1003S-0076

PATIENT
  Age: 63 Year
  Sex: Female

DRUGS (1)
  1. OMNISCAN [Suspect]
     Indication: SYNCOPE
     Dosage: SINGLE DOSE, I.V.
     Route: 042
     Dates: start: 20090110, end: 20090110

REACTIONS (2)
  - DIALYSIS [None]
  - RENAL IMPAIRMENT [None]
